FAERS Safety Report 6571003-6 (Version None)
Quarter: 2010Q1

REPORT INFORMATION
  Report Type: 
  Country: None (occurrence: None)
  Receive Date: 20100203
  Receipt Date: 20100203
  Transmission Date: 20100710
  Serious: Yes (Death)
  Sender: FDA-Public Use
  Company Number: None

PATIENT
  Age: 44 Year
  Sex: Female
  Weight: 47 kg

DRUGS (13)
  1. KEPPRA [Suspect]
     Indication: CONVULSION
     Dosage: 250 MG Q12H IV DRIP
     Route: 041
     Dates: start: 20100107, end: 20100117
  2. CALCITRIOL [Concomitant]
  3. EPOGEN [Concomitant]
  4. LEVOTHYROXINE SODIUM [Concomitant]
  5. SLIDING SCALE INSULIN [Concomitant]
  6. LISINOPRIL [Concomitant]
  7. MAGIC MOUTHWASH [Concomitant]
  8. DILAUDID [Concomitant]
  9. PROMETHAZINE [Concomitant]
  10. LORTAB [Concomitant]
  11. AMBIEN [Concomitant]
  12. MINOXIDIL [Concomitant]
  13. ASPIRIN [Concomitant]

REACTIONS (19)
  - ABNORMAL BEHAVIOUR [None]
  - ACUTE PSYCHOSIS [None]
  - ANGER [None]
  - ANXIETY [None]
  - AZOTAEMIA [None]
  - CARDIO-RESPIRATORY ARREST [None]
  - CATHETER SITE HAEMORRHAGE [None]
  - COMPLETED SUICIDE [None]
  - DELIRIUM [None]
  - HAEMODIALYSIS [None]
  - HALLUCINATION, AUDITORY [None]
  - HALLUCINATION, VISUAL [None]
  - HYPOTENSION [None]
  - MENTAL STATUS CHANGES [None]
  - MYOCLONUS [None]
  - NEUROLOGICAL SYMPTOM [None]
  - REFUSAL OF TREATMENT BY PATIENT [None]
  - SUICIDAL IDEATION [None]
  - UNRESPONSIVE TO STIMULI [None]
